FAERS Safety Report 4506034-0 (Version None)
Quarter: 2004Q4

REPORT INFORMATION
  Report Type: 
  Country: None (occurrence: None)
  Receive Date: 20041025
  Receipt Date: 20031022
  Transmission Date: 20050328
  Serious: Yes (Other)
  Sender: FDA-Public Use
  Company Number: US-JNJFOC-20030803212

PATIENT
  Age: 54 Year
  Sex: Female
  Weight: 104.7809 kg

DRUGS (7)
  1. REMICADE [Suspect]
     Indication: PSORIATIC ARTHROPATHY
     Dosage: 3 MG/KG, 1 IN 1 DAY, INTRAVENOUS
     Route: 042
     Dates: start: 20021123, end: 20021123
  2. REMICADE [Suspect]
     Indication: PSORIATIC ARTHROPATHY
     Dosage: 3 MG/KG, 1 IN 1 DAY, INTRAVENOUS
     Route: 042
     Dates: start: 20030510, end: 20030510
  3. METHOTREXATE [Concomitant]
  4. VIOXX [Concomitant]
  5. ULTRAM [Concomitant]
  6. PREVACID [Concomitant]
  7. CELEXA [Concomitant]

REACTIONS (1)
  - LYMPHOMA [None]
